FAERS Safety Report 4931999-2 (Version None)
Quarter: 2006Q1

REPORT INFORMATION
  Report Type: 
  Country: None (occurrence: None)
  Receive Date: 20060303
  Receipt Date: 20060209
  Transmission Date: 20060701
  Serious: Yes (Hospitalization)
  Sender: FDA-Public Use
  Company Number: JP-JPN-A200600537

PATIENT
  Age: 69 Year
  Sex: Female
  Weight: 44 kg

DRUGS (10)
  1. VALTREX [Suspect]
     Indication: HERPES SIMPLEX
     Dosage: 500MG TWICE PER DAY
     Route: 048
     Dates: start: 20050816, end: 20050817
  2. PL [Concomitant]
     Indication: NASOPHARYNGITIS
     Dosage: 3G PER DAY
     Route: 048
     Dates: start: 20050809, end: 20050816
  3. LASIX [Concomitant]
     Dosage: 80MG PER DAY
     Route: 048
  4. MARZULENE S [Concomitant]
     Dosage: 1.5G PER DAY
     Route: 048
  5. PERSANTIN [Concomitant]
     Dosage: 300MG PER DAY
     Route: 048
  6. BIOFERMIN [Concomitant]
     Dosage: 3G PER DAY
     Route: 048
  7. ZYLORIC [Concomitant]
     Dosage: 100MG PER DAY
     Route: 048
  8. GASTER D [Concomitant]
     Dosage: 10MG PER DAY
     Route: 048
  9. DIFLUCAN [Concomitant]
     Dosage: 100MG PER DAY
     Route: 048
  10. COTRIM [Concomitant]
     Dosage: 1U PER DAY
     Route: 048

REACTIONS (3)
  - DISORIENTATION [None]
  - ENCEPHALOPATHY [None]
  - HALLUCINATION [None]
